FAERS Safety Report 9474054 (Version 21)
Quarter: 2015Q1

REPORT INFORMATION
  Report Type: Spontaneous
  Country: GB (occurrence: GB)
  Receive Date: 20130823
  Receipt Date: 20150313
  Transmission Date: 20150721
  Serious: Yes (Other)
  Sender: FDA-Public Use
  Company Number: PHFR2013GB004862

PATIENT
  Age: 48 Year
  Sex: Male

DRUGS (15)
  1. LAMOTRIGINE. [Concomitant]
     Active Substance: LAMOTRIGINE
     Indication: EPILEPSY
     Dosage: 200 MG, BID
     Route: 048
  2. SIMVASTATIN. [Concomitant]
     Active Substance: SIMVASTATIN
     Indication: LIPIDS ABNORMAL
     Dosage: 40 MG, QD
     Route: 048
  3. THYROXINE [Concomitant]
     Active Substance: LEVOTHYROXINE
     Indication: PRODUCT USED FOR UNKNOWN INDICATION
     Dosage: 225 UG, QD
     Route: 065
  4. EPILIM [Concomitant]
     Active Substance: VALPROATE SODIUM
     Indication: EPILEPSY
     Dosage: 500 MG, BID
     Route: 048
  5. PROCYCLIDINE [Concomitant]
     Active Substance: PROCYCLIDINE
     Indication: HEADACHE
     Dosage: 5 MG, TID
     Route: 048
  6. LEVOTHYROXINE [Concomitant]
     Active Substance: LEVOTHYROXINE
     Indication: THYROID HORMONE REPLACEMENT THERAPY
     Dosage: 225 UG, QD
     Route: 048
  7. ARIPIPRAZOLE. [Concomitant]
     Active Substance: ARIPIPRAZOLE
     Indication: PRODUCT USED FOR UNKNOWN INDICATION
     Dosage: 10 MG, QD
     Route: 065
  8. AMITRIPTYLINE [Concomitant]
     Active Substance: AMITRIPTYLINE
     Indication: HEADACHE
     Dosage: 20 MG, UNK
     Route: 048
  9. OMEPRAZOLE. [Concomitant]
     Active Substance: OMEPRAZOLE
     Indication: GASTROINTESTINAL DISORDER
     Dosage: 20 MG, QD
     Route: 065
  10. LEVETIRACETAM. [Concomitant]
     Active Substance: LEVETIRACETAM
     Indication: PRODUCT USED FOR UNKNOWN INDICATION
     Dosage: 750 MG, BID
     Route: 048
  11. HYOSCINE [Concomitant]
     Active Substance: SCOPOLAMINE
     Indication: PRODUCT USED FOR UNKNOWN INDICATION
     Dosage: 300 UG, BID
     Route: 065
  12. CLOZARIL [Suspect]
     Active Substance: CLOZAPINE
     Dosage: UNK (AROUND 19 JAN 2015)
     Route: 048
  13. CLOZARIL [Suspect]
     Active Substance: CLOZAPINE
     Indication: SCHIZOPHRENIA
     Dosage: UNK
     Route: 048
     Dates: start: 20121001
  14. VALPROATE SODIUM. [Concomitant]
     Active Substance: VALPROATE SODIUM
     Indication: EPILEPSY
     Dosage: 500 MG, BID
     Route: 048
  15. KEPPRA [Concomitant]
     Active Substance: LEVETIRACETAM
     Indication: EPILEPSY
     Dosage: 750 MG, BID
     Route: 065

REACTIONS (14)
  - Neutrophil count decreased [Recovered/Resolved]
  - Platelet count decreased [Recovered/Resolved]
  - Neutrophil count decreased [Recovered/Resolved]
  - Platelet count decreased [Recovered/Resolved]
  - Neutrophil count decreased [Recovered/Resolved]
  - Neutropenia [Not Recovered/Not Resolved]
  - Platelet count decreased [Recovered/Resolved]
  - Neutrophil count decreased [Not Recovered/Not Resolved]
  - Chronic lymphocytic leukaemia [Unknown]
  - White blood cell count decreased [Recovered/Resolved]
  - White blood cell count decreased [Not Recovered/Not Resolved]
  - White blood cell count decreased [Recovered/Resolved]
  - Platelet count decreased [Recovered/Resolved]
  - Neutrophil count decreased [Recovered/Resolved]

NARRATIVE: CASE EVENT DATE: 20140107
